FAERS Safety Report 7466803-4 (Version None)
Quarter: 2011Q2

REPORT INFORMATION
  Report Type: 
  Country: None (occurrence: None)
  Receive Date: 20110509
  Receipt Date: 20110504
  Transmission Date: 20111010
  Serious: Yes (Hospitalization)
  Sender: FDA-Public Use
  Company Number: HU-MERCK-1105USA01027

PATIENT
  Age: 83 Year
  Sex: Female

DRUGS (10)
  1. FOSAMAX PLUS D [Suspect]
     Indication: OSTEOPOROSIS
     Route: 048
     Dates: start: 20070101
  2. FUROSEMIDE [Concomitant]
     Route: 065
  3. CALCIVID [Concomitant]
     Indication: OSTEOPOROSIS
     Route: 065
  4. KALDYUM [Concomitant]
     Route: 065
  5. ARCOXIA [Concomitant]
     Indication: ARTHRALGIA
     Route: 048
  6. BETAGAN [Concomitant]
     Indication: HYPERTENSION
     Route: 065
  7. PROPAFENONE HYDROCHLORIDE [Concomitant]
     Route: 065
  8. CONDROSULF [Concomitant]
     Indication: ARTHRALGIA
     Route: 048
  9. COVIOGAL [Concomitant]
     Route: 065
  10. PREDUCTAL [Concomitant]
     Route: 065

REACTIONS (1)
  - FEMUR FRACTURE [None]
